FAERS Safety Report 9969965 (Version 1)
Quarter: 2014Q1

REPORT INFORMATION
  Report Type: Spontaneous
  Country: US (occurrence: US)
  Receive Date: 20140306
  Receipt Date: 20140306
  Transmission Date: 20141002
  Serious: No
  Sender: FDA-Public Use
  Company Number: US-DRREDDYS-USA/USA/13/0034654

PATIENT
  Age: 26 Year
  Sex: Male

DRUGS (6)
  1. LEVETIRACETAM [Suspect]
     Indication: OBSESSIVE-COMPULSIVE DISORDER
     Route: 065
  2. LEVETIRACETAM [Suspect]
     Indication: ATTENTION DEFICIT/HYPERACTIVITY DISORDER
  3. TOPIRAMATE [Suspect]
     Indication: OBSESSIVE-COMPULSIVE DISORDER
     Route: 065
  4. TOPIRAMATE [Suspect]
     Indication: ATTENTION DEFICIT/HYPERACTIVITY DISORDER
  5. MIXED AMPHETAMINE SALTS [Suspect]
     Indication: OBSESSIVE-COMPULSIVE DISORDER
     Route: 065
  6. MIXED AMPHETAMINE SALTS [Suspect]
     Indication: ATTENTION DEFICIT/HYPERACTIVITY DISORDER

REACTIONS (2)
  - Sedation [Recovered/Resolved]
  - Sexual dysfunction [Recovered/Resolved]
